FAERS Safety Report 16964098 (Version 1)
Quarter: 2019Q4

REPORT INFORMATION
  Report Type: Spontaneous
  Country: US (occurrence: US)
  Receive Date: 20191026
  Receipt Date: 20191026
  Transmission Date: 20200122
  Serious: Yes (Hospitalization)
  Sender: FDA-Public Use
  Company Number: US-JNJFOC-20191034875

PATIENT
  Age: 5 Decade
  Sex: Male

DRUGS (1)
  1. TYLENOL SINUS PLUS HEADACHE DAY [Suspect]
     Active Substance: ACETAMINOPHEN\PHENYLEPHRINE HYDROCHLORIDE
     Indication: SINUS DISORDER
     Dosage: 2 TABLETS EVERY 4 HOURS
     Route: 048

REACTIONS (2)
  - Blood pressure increased [Unknown]
  - Headache [Unknown]
